FAERS Safety Report 8371102-2 (Version None)
Quarter: 2012Q2

REPORT INFORMATION
  Report Type: 
  Country: None (occurrence: None)
  Receive Date: 20120518
  Receipt Date: 20120207
  Transmission Date: 20120825
  Serious: No
  Sender: FDA-Public Use
  Company Number: US-BRISTOL-MYERS SQUIBB COMPANY-16373706

PATIENT
  Sex: Male

DRUGS (1)
  1. BARACLUDE [Suspect]
     Dosage: DURATION: 6 MONTHS

REACTIONS (2)
  - PREGNANCY [None]
  - EXPOSURE VIA FATHER [None]
